FAERS Safety Report 9768212 (Version 2)
Quarter: 2014Q1

REPORT INFORMATION
  Report Type: Spontaneous
  Country: SE (occurrence: SE)
  Receive Date: 20131217
  Receipt Date: 20140218
  Transmission Date: 20141002
  Serious: Yes (Life-Threatening, Hospitalization, Other)
  Sender: FDA-Public Use
  Company Number: SE-PFIZER INC-2013360431

PATIENT
  Age: 28 Year
  Sex: Male

DRUGS (3)
  1. LYRICA [Suspect]
     Dosage: 300 MG, 2X/DAY
     Dates: start: 201209
  2. LYRICA [Suspect]
     Dosage: 3 G, UNK
     Dates: start: 20131017
  3. PAROXETINE [Concomitant]

REACTIONS (2)
  - Overdose [Recovered/Resolved]
  - Convulsion [Recovered/Resolved]
